FAERS Safety Report 6093991-7 (Version None)
Quarter: 2009Q1

REPORT INFORMATION
  Report Type: 
  Country: None (occurrence: None)
  Receive Date: 20090226
  Receipt Date: 20090223
  Transmission Date: 20090719
  Serious: Yes (Other)
  Sender: FDA-Public Use
  Company Number: B0557397A

PATIENT
  Age: 36 Year
  Sex: Female

DRUGS (1)
  1. RELENZA [Suspect]
     Dosage: 10MG PER DAY
     Route: 055
     Dates: start: 20090130, end: 20090130

REACTIONS (5)
  - ANAPHYLACTOID REACTION [None]
  - BRONCHOSPASM [None]
  - DYSPNOEA [None]
  - EPISTAXIS [None]
  - STOMATITIS [None]
